FAERS Safety Report 12242093 (Version 1)
Quarter: 2016Q2

REPORT INFORMATION
  Report Type: Spontaneous
  Country: None (occurrence: None)
  Receive Date: 20160405
  Receipt Date: 20160405
  Transmission Date: 20160815
  Serious: Yes (Other)
  Sender: FDA-Public Use
  Company Number: None

PATIENT
  Age: 51 Year
  Sex: Female

DRUGS (14)
  1. XELODA [Suspect]
     Active Substance: CAPECITABINE
     Dosage: AT LEAST 2 MONTHS
     Route: 048
  2. BUTALBITAL/APAP [Concomitant]
  3. TRAZODONE [Concomitant]
     Active Substance: TRAZODONE HYDROCHLORIDE
  4. ALPRAZOLAM. [Concomitant]
     Active Substance: ALPRAZOLAM
  5. PRISTIQ EXTENDED-RELEASE [Concomitant]
     Active Substance: DESVENLAFAXINE SUCCINATE
  6. AMOXICILLIN. [Concomitant]
     Active Substance: AMOXICILLIN
  7. ONDANSETRON [Concomitant]
     Active Substance: ONDANSETRON
  8. NORTRIPTYLINE [Concomitant]
     Active Substance: NORTRIPTYLINE
  9. HYDROCORTISONE. [Concomitant]
     Active Substance: HYDROCORTISONE
  10. ADVAIR HFA [Concomitant]
     Active Substance: FLUTICASONE PROPIONATE\SALMETEROL XINAFOATE
  11. CYCLOBENZAPRINE [Concomitant]
     Active Substance: CYCLOBENZAPRINE
  12. CELECOXIB. [Concomitant]
     Active Substance: CELECOXIB
  13. DEXILANT [Concomitant]
     Active Substance: DEXLANSOPRAZOLE
  14. AZITHROMYCIN ANHYDROUS. [Concomitant]
     Active Substance: AZITHROMYCIN ANHYDROUS

REACTIONS (2)
  - Musculoskeletal stiffness [None]
  - Paraesthesia [None]

NARRATIVE: CASE EVENT DATE: 20160404
